FAERS Safety Report 9345438 (Version 1)
Quarter: 2013Q2

REPORT INFORMATION
  Report Type: Spontaneous
  Country: US (occurrence: US)
  Receive Date: 20130613
  Receipt Date: 20130613
  Transmission Date: 20140414
  Serious: Yes (Death, Hospitalization)
  Sender: FDA-Public Use
  Company Number: US-RANBAXY-2013US-70187

PATIENT
  Age: 64 Year
  Sex: Male

DRUGS (1)
  1. MORPHINE [Suspect]
     Indication: PRODUCT USED FOR UNKNOWN INDICATION
     Dosage: UNK
     Route: 048

REACTIONS (8)
  - Respiratory rate decreased [Unknown]
  - Somnolence [Unknown]
  - Renal failure [Unknown]
  - Myoclonic epilepsy [Unknown]
  - Cardiac arrest [Unknown]
  - Suicide attempt [Unknown]
  - Overdose [Unknown]
  - Death [Fatal]
